FAERS Safety Report 20000184 (Version 1)
Quarter: 2021Q4

REPORT INFORMATION
  Report Type: Spontaneous
  Country: US (occurrence: US)
  Receive Date: 20211026
  Receipt Date: 20211026
  Transmission Date: 20220303
  Serious: Yes (Hospitalization)
  Sender: FDA-Public Use
  Company Number: US-AMGEN-USASP2021162417

PATIENT
  Age: 86 Year
  Sex: Female

DRUGS (2)
  1. ENBREL [Suspect]
     Active Substance: ETANERCEPT
     Indication: Rheumatoid arthritis
     Dosage: 50 MILLIGRAM, QWK
     Route: 065
  2. ENBREL [Suspect]
     Active Substance: ETANERCEPT
     Indication: Osteoarthritis

REACTIONS (6)
  - Confusional state [Unknown]
  - Fatigue [Unknown]
  - Unevaluable event [Unknown]
  - Psychiatric evaluation [Unknown]
  - Device difficult to use [Unknown]
  - Device use issue [Unknown]

NARRATIVE: CASE EVENT DATE: 20211015
